FAERS Safety Report 5091975-9 (Version None)
Quarter: 2006Q3

REPORT INFORMATION
  Report Type: 
  Country: None (occurrence: None)
  Receive Date: 20060825
  Receipt Date: 20060810
  Transmission Date: 20061208
  Serious: Yes (Hospitalization)
  Sender: FDA-Public Use
  Company Number: FR200604002835

PATIENT
  Age: 54 Year
  Sex: Female
  Weight: 45 kg

DRUGS (12)
  1. FORTEO [Suspect]
     Indication: OSTEOPOROSIS
     Dosage: 20 UG, DAILY (1/D), SUBCUTANEOUS
     Route: 058
     Dates: start: 20050419, end: 20060702
  2. FORTEO [Concomitant]
  3. LEVOTHYROXINE SODIUM [Concomitant]
  4. LAMALINE (BEALLADONA EXTRACT, CAFFEINE, OPIUM TINCTURE, PARACETAMOL) [Concomitant]
  5. TRILEPTAL [Concomitant]
  6. LEXOMIL (BROMAZEPAM) [Concomitant]
  7. IMOVANE (ZOPICLONE) [Concomitant]
  8. CALTRATE (CALCIUM CARBONATE) [Concomitant]
  9. ACETAMINOPHEN [Concomitant]
  10. MAG 2 (MAGNESIUM PIDOALTE) [Concomitant]
  11. DHEA (PRASTERONE) [Concomitant]
  12. SPASFON (PHLOROGLUCINOL, TRIMETHYLPHLOROGLUCINOL) [Concomitant]

REACTIONS (3)
  - ABDOMINAL PAIN UPPER [None]
  - ANAL CANCER [None]
  - BLOOD THYROID STIMULATING HORMONE INCREASED [None]
